FAERS Safety Report 8345103-4 (Version None)
Quarter: 2012Q2

REPORT INFORMATION
  Report Type: 
  Country: None (occurrence: None)
  Receive Date: 20120508
  Receipt Date: 20120425
  Transmission Date: 20120825
  Serious: Yes (Life-Threatening, Other)
  Sender: FDA-Public Use
  Company Number: FR-COVIDIEN/TYCO HEALTHCARE/MALLINCKRODT-T201201590

PATIENT
  Age: 1 Day
  Sex: Female

DRUGS (1)
  1. TRAMADOL HYDROCHLORIDE [Suspect]
     Dosage: UNK

REACTIONS (3)
  - FOETAL EXPOSURE DURING PREGNANCY [None]
  - CARDIO-RESPIRATORY ARREST NEONATAL [None]
  - DRUG WITHDRAWAL SYNDROME NEONATAL [None]
